FAERS Safety Report 8853372 (Version 1)
Quarter: 2012Q4

REPORT INFORMATION
  Report Type: Report from Study
  Country: DE (occurrence: DE)
  Receive Date: 20121022
  Receipt Date: 20121022
  Transmission Date: 20130627
  Serious: Yes (Hospitalization)
  Sender: FDA-Public Use
  Company Number: DE-ROCHE-1145833

PATIENT
  Age: 76 Year
  Sex: Male
  Weight: 60 kg

DRUGS (9)
  1. RANIBIZUMAB [Suspect]
     Indication: AGE-RELATED MACULAR DEGENERATION
     Route: 050
     Dates: start: 20120619
  2. RANIBIZUMAB [Suspect]
     Route: 050
     Dates: start: 20120717
  3. RANIBIZUMAB [Suspect]
     Route: 050
     Dates: start: 20120814
  4. RAMILICH [Concomitant]
     Route: 065
  5. ACETYLSALICYLIC ACID [Concomitant]
     Route: 065
  6. SIMVASTATIN [Concomitant]
  7. L-THYROXIN [Concomitant]
     Route: 065
  8. BEPANTHEN [Concomitant]
     Route: 065
     Dates: start: 2007
  9. ARTELAC [Concomitant]

REACTIONS (1)
  - Retinal degeneration [Not Recovered/Not Resolved]
